FAERS Safety Report 14356081 (Version 8)
Quarter: 2018Q3

REPORT INFORMATION
  Report Type: Spontaneous
  Country: CA (occurrence: CA)
  Receive Date: 20180105
  Receipt Date: 20180906
  Transmission Date: 20181010
  Serious: Yes (Hospitalization, Other)
  Sender: FDA-Public Use
  Company Number: CA-CELLTRION INC.-2017CA014714

PATIENT

DRUGS (14)
  1. INFLECTRA [Suspect]
     Active Substance: INFLIXIMAB-DYYB
     Indication: CROHN^S DISEASE
     Dosage: 400 MG, CYCLIC (EVERY 0,2,6 WEEKS, THEN EVERY 8 WEEKS)
     Route: 042
     Dates: start: 20170519, end: 20170830
  2. INFLECTRA [Suspect]
     Active Substance: INFLIXIMAB-DYYB
     Dosage: 820 MG,  (THEN EVERY 8 WEEKS)
     Route: 042
     Dates: start: 20180212
  3. LOMOTIL [Concomitant]
     Active Substance: ATROPINE SULFATE\DIPHENOXYLATE HYDROCHLORIDE
     Dosage: UNK
     Dates: start: 2015
  4. INFLECTRA [Suspect]
     Active Substance: INFLIXIMAB-DYYB
     Dosage: 820 MG , (THEN EVERY 6 WEEKS)
     Route: 042
     Dates: start: 20180524
  5. IRON [Concomitant]
     Active Substance: IRON
     Dosage: UNKUNK, AS NEEDED
  6. INFLECTRA [Suspect]
     Active Substance: INFLIXIMAB-DYYB
     Dosage: 820 MG , (THEN EVERY 8 WEEKS)
     Route: 042
     Dates: start: 20171222
  7. INFLECTRA [Suspect]
     Active Substance: INFLIXIMAB-DYYB
     Dosage: 820 MG , (THEN EVERY 6 WEEKS)
     Route: 042
     Dates: start: 20180823
  8. INFLECTRA [Suspect]
     Active Substance: INFLIXIMAB-DYYB
     Dosage: 820 MG , (THEN EVERY 8 WEEKS)
     Route: 042
     Dates: start: 20180412
  9. IMURAN [Concomitant]
     Active Substance: AZATHIOPRINE
     Dosage: 2 DF (TABLETS), DAILY
     Route: 065
     Dates: start: 201611
  10. INFLECTRA [Suspect]
     Active Substance: INFLIXIMAB-DYYB
     Dosage: 820 MG, THEN EVERY 8 WEEKS
     Route: 042
     Dates: start: 20170519, end: 20180412
  11. INFLECTRA [Suspect]
     Active Substance: INFLIXIMAB-DYYB
     Dosage: 820 MG , (THEN EVERY 6 WEEKS)
     Route: 042
     Dates: start: 20180710
  12. INFLECTRA [Suspect]
     Active Substance: INFLIXIMAB-DYYB
     Dosage: 820 MG,  (THEN EVERY 8 WEEKS)
     Route: 042
     Dates: start: 20180212
  13. TYLENOL WITH CODEINE [Concomitant]
     Active Substance: ACETAMINOPHEN\CODEINE PHOSPHATE
     Dosage: UNK, AS NEEDED
  14. PREDNISONE. [Concomitant]
     Active Substance: PREDNISONE
     Dosage: 25 MG, 1X/DAY
     Route: 048
     Dates: start: 201606

REACTIONS (8)
  - Gastrointestinal obstruction [Unknown]
  - Abdominal pain upper [Recovered/Resolved]
  - Dyspnoea [Unknown]
  - Vomiting [Unknown]
  - Hypersensitivity [Unknown]
  - Condition aggravated [Not Recovered/Not Resolved]
  - Diarrhoea [Unknown]
  - Product use issue [Unknown]
